FAERS Safety Report 19022388 (Version 1)
Quarter: 2021Q1

REPORT INFORMATION
  Report Type: Spontaneous
  Country: RO (occurrence: RO)
  Receive Date: 20210318
  Receipt Date: 20210318
  Transmission Date: 20210420
  Serious: Yes (Other)
  Sender: FDA-Public Use
  Company Number: RO-SUN PHARMACEUTICAL INDUSTRIES LTD-2021RR-286177

PATIENT
  Age: 28 Year
  Sex: Female

DRUGS (1)
  1. LEVETIRACETAM. [Suspect]
     Active Substance: LEVETIRACETAM
     Indication: EPILEPSY
     Dosage: LOWER DOSES DURING PREGNANCY
     Route: 065

REACTIONS (4)
  - Seizure [Recovering/Resolving]
  - Exposure during pregnancy [Unknown]
  - Hemiparesis [Recovering/Resolving]
  - Headache [Recovering/Resolving]
